FAERS Safety Report 14980645 (Version 1)
Quarter: 2018Q2

REPORT INFORMATION
  Report Type: Spontaneous
  Country: US (occurrence: US)
  Receive Date: 20180606
  Receipt Date: 20180606
  Transmission Date: 20180711
  Serious: No
  Sender: FDA-Public Use
  Company Number: US-PERRIGO-17US026945

PATIENT
  Age: 63 Year
  Sex: Male
  Weight: 63.49 kg

DRUGS (5)
  1. ATENOLOL. [Concomitant]
     Active Substance: ATENOLOL
     Indication: HYPERTENSION
     Dosage: UNK
     Route: 065
     Dates: start: 2014
  2. RANITIDINE HYDROCHLORIDE. [Suspect]
     Active Substance: RANITIDINE HYDROCHLORIDE
     Indication: GASTROOESOPHAGEAL REFLUX DISEASE
     Dosage: 150 MG, BID, PRN
     Route: 048
     Dates: start: 20110511, end: 201701
  3. RANITIDINE HYDROCHLORIDE. [Suspect]
     Active Substance: RANITIDINE HYDROCHLORIDE
     Dosage: 150 MG, BID
     Route: 048
     Dates: start: 201701
  4. DIAZEPAM. [Concomitant]
     Active Substance: DIAZEPAM
     Indication: PANIC ATTACK
     Dosage: 5 MG, BID
     Route: 048
  5. ASPIRIN                            /00002701/ [Concomitant]
     Active Substance: ASPIRIN
     Indication: ROUTINE HEALTH MAINTENANCE
     Dosage: 81 MG
     Route: 048
     Dates: start: 201505

REACTIONS (2)
  - Incorrect drug administration duration [Unknown]
  - Blood potassium increased [Unknown]

NARRATIVE: CASE EVENT DATE: 201701
